FAERS Safety Report 6173079-7 (Version None)
Quarter: 2009Q2

REPORT INFORMATION
  Report Type: 
  Country: None (occurrence: None)
  Receive Date: 20090430
  Receipt Date: 20080815
  Transmission Date: 20091009
  Serious: No
  Sender: FDA-Public Use
  Company Number: US-TYCO HEALTHCARE/MALLINCKRODT-T200801349

PATIENT

DRUGS (1)
  1. CYSTO-CONRAY II [Suspect]
     Indication: CYSTOGRAM
     Dosage: LESS THAN 10 ML, SINGLE
     Route: 042
     Dates: start: 20080815, end: 20080815

REACTIONS (2)
  - INCORRECT ROUTE OF DRUG ADMINISTRATION [None]
  - WRONG DRUG ADMINISTERED [None]
